FAERS Safety Report 7581141-7 (Version None)
Quarter: 2011Q2

REPORT INFORMATION
  Report Type: 
  Country: None (occurrence: None)
  Receive Date: 20110629
  Receipt Date: 20110623
  Transmission Date: 20111010
  Serious: Yes (Life-Threatening, Other)
  Sender: FDA-Public Use
  Company Number: GB-PFIZER INC-2011140601

PATIENT
  Age: 54 Year
  Sex: Male
  Weight: 95.27 kg

DRUGS (1)
  1. IBUPROFEN [Suspect]
     Dosage: UNK
     Dates: start: 20110614

REACTIONS (2)
  - LARYNGEAL OEDEMA [None]
  - HYPERSENSITIVITY [None]
